FAERS Safety Report 7602330-9 (Version None)
Quarter: 2011Q3

REPORT INFORMATION
  Report Type: 
  Country: None (occurrence: None)
  Receive Date: 20110712
  Receipt Date: 20110705
  Transmission Date: 20111222
  Serious: Yes (Hospitalization)
  Sender: FDA-Public Use
  Company Number: US-BIOGENIDEC-2011BI007175

PATIENT
  Age: 32 Year
  Sex: Female

DRUGS (1)
  1. TYSABRI [Suspect]
     Indication: MULTIPLE SCLEROSIS
     Route: 042
     Dates: start: 20110121, end: 20110218

REACTIONS (5)
  - PYREXIA [None]
  - DIZZINESS [None]
  - MYOCARDIAL INFARCTION [None]
  - VISION BLURRED [None]
  - CHEST PAIN [None]
